FAERS Safety Report 25249915 (Version 1)
Quarter: 2025Q2

REPORT INFORMATION
  Report Type: Spontaneous
  Country: ES (occurrence: ES)
  Receive Date: 20250429
  Receipt Date: 20250429
  Transmission Date: 20250717
  Serious: Yes (Life-Threatening, Hospitalization)
  Sender: JOHNSON AND JOHNSON
  Company Number: None

PATIENT
  Age: 68 Year
  Sex: Female

DRUGS (4)
  1. DARZALEX [Suspect]
     Active Substance: DARATUMUMAB
     Indication: Plasma cell myeloma
     Dosage: 1 WEEKLY INJECTION
     Route: 058
     Dates: start: 20250305, end: 20250402
  2. VELCADE [Suspect]
     Active Substance: BORTEZOMIB
     Indication: Plasma cell myeloma
     Dosage: 1 INJECTION PER WEEK
     Route: 058
     Dates: start: 20250305, end: 20250402
  3. LENALIDOMIDE [Suspect]
     Active Substance: LENALIDOMIDE
     Indication: Plasma cell myeloma
     Dosage: 1 TABLET DAILY IN 21-DAY CYCLES, CYCLE 1 FROM MARCH 5TH TO 25TH, CYCLE 2 STARTS ON APRIL 2ND, 2025
     Route: 048
     Dates: start: 20250305, end: 20250409
  4. DEXAMETHASONE [Suspect]
     Active Substance: DEXAMETHASONE
     Indication: Plasma cell myeloma
     Dosage: DEXAMETHASONE 40MG ON THE DAY OF TREATMENT AT THE DAY HOSPITAL (HDM) AND THE FOLLOWING DAY
     Route: 048
     Dates: start: 20250305, end: 20250403

REACTIONS (2)
  - Bronchitis pneumococcal [Recovered/Resolved]
  - Acute respiratory failure [Recovered/Resolved]

NARRATIVE: CASE EVENT DATE: 20250409
